FAERS Safety Report 9769257 (Version 1)
Quarter: 2013Q4

REPORT INFORMATION
  Report Type: Spontaneous
  Country: US (occurrence: None)
  Receive Date: 20131217
  Receipt Date: 20131217
  Transmission Date: 20140711
  Serious: No
  Sender: FDA-Public Use
  Company Number: None

PATIENT
  Age: 25 Year
  Sex: Female

DRUGS (1)
  1. IMPLANON [Suspect]
     Dates: start: 20120105, end: 20131125

REACTIONS (2)
  - Pregnancy with implant contraceptive [None]
  - Exposure during pregnancy [None]
